FAERS Safety Report 7118062-X (Version None)
Quarter: 2010Q4

REPORT INFORMATION
  Report Type: 
  Country: None (occurrence: None)
  Receive Date: 20101123
  Receipt Date: 20101108
  Transmission Date: 20110411
  Serious: Yes (Hospitalization)
  Sender: FDA-Public Use
  Company Number: US-BAYER-200943144NA

PATIENT
  Age: 42 Year
  Sex: Female
  Weight: 120 kg

DRUGS (13)
  1. YASMIN [Suspect]
     Indication: MENSTRUAL CYCLE MANAGEMENT
     Route: 048
     Dates: start: 20050101, end: 20070801
  2. PROTONIX [Concomitant]
     Indication: GASTRIC ULCER
     Dosage: UNIT DOSE: 40 MG
     Dates: start: 20050101
  3. LEVSIN [Concomitant]
     Indication: IRRITABLE BOWEL SYNDROME
     Dosage: DAILY
     Dates: start: 20050101
  4. COUMADIN [Concomitant]
  5. COUMADIN [Concomitant]
     Dosage: ADJUST FOR INR 2 TO 2 FOR LIFE
     Dates: start: 20070801
  6. LEVAQUIN [Concomitant]
     Dosage: 750MG A DAY FOR TWO MORE DAYS.
  7. LORTAB [Concomitant]
     Indication: PAIN
     Dosage: 5/500MG EVEY SIX HOURS
  8. LASIX [Concomitant]
     Indication: HYPERTENSION
     Dosage: DAILY
     Dates: start: 20050101
  9. POTASSIUM CHLORIDE [Concomitant]
     Indication: MINERAL SUPPLEMENTATION
     Dosage: DAILY
     Dates: start: 20050101
  10. TYLENOL (CAPLET) [Concomitant]
     Indication: PAIN
  11. NSAID'S [Concomitant]
     Dates: start: 19960101, end: 20060101
  12. ASCORBIC ACID [Concomitant]
  13. MOTRIN [Concomitant]
     Indication: PAIN

REACTIONS (6)
  - CHEST PAIN [None]
  - DEEP VEIN THROMBOSIS [None]
  - DYSPNOEA EXERTIONAL [None]
  - GAIT DISTURBANCE [None]
  - PAIN IN EXTREMITY [None]
  - PULMONARY EMBOLISM [None]
